FAERS Safety Report 9644878 (Version 2)
Quarter: 2014Q2

REPORT INFORMATION
  Report Type: Spontaneous
  Country: CH (occurrence: CH)
  Receive Date: 20131025
  Receipt Date: 20140502
  Transmission Date: 20141212
  Serious: Yes (Death)
  Sender: FDA-Public Use
  Company Number: PHHY2013CH119586

PATIENT
  Sex: Male

DRUGS (6)
  1. TASIGNA [Suspect]
     Indication: CHRONIC MYELOID LEUKAEMIA
     Dosage: 400 MG, BID
     Route: 048
     Dates: start: 201306
  2. NITRODERM TTS [Concomitant]
  3. BELOC-ZOC MITE [Concomitant]
     Dosage: 50 MG, QD
  4. EXFORGE HCT [Concomitant]
  5. CIPRALEX [Concomitant]
     Dosage: 10 MG
  6. ASPIRIN [Concomitant]
     Dosage: 100 MG, QD

REACTIONS (2)
  - Blast crisis in myelogenous leukaemia [Fatal]
  - Drug resistance [Unknown]
